FAERS Safety Report 5875178-3 (Version None)
Quarter: 2008Q3

REPORT INFORMATION
  Report Type: 
  Country: None (occurrence: None)
  Receive Date: 20080909
  Receipt Date: 20080909
  Transmission Date: 20090109
  Serious: Yes (Other)
  Sender: FDA-Public Use
  Company Number: A0746524A

PATIENT
  Age: 19 Year
  Sex: Female
  Weight: 69.5 kg

DRUGS (2)
  1. ALLI [Suspect]
     Indication: WEIGHT CONTROL
     Route: 048
  2. ADVIL [Concomitant]

REACTIONS (4)
  - CONSTIPATION [None]
  - GASTRIC ULCER [None]
  - HAEMATEMESIS [None]
  - PHARYNGITIS [None]
